FAERS Safety Report 11492235 (Version 3)
Quarter: 2015Q3

REPORT INFORMATION
  Report Type: Spontaneous
  Country: US (occurrence: US)
  Receive Date: 20150910
  Receipt Date: 20150929
  Transmission Date: 20151125
  Serious: Yes (Other)
  Sender: FDA-Public Use
  Company Number: US-PFIZER INC-2015302066

PATIENT
  Age: 30 Year
  Sex: Male
  Weight: 64 kg

DRUGS (1)
  1. VIAGRA [Suspect]
     Active Substance: SILDENAFIL CITRATE
     Indication: SEXUAL DYSFUNCTION
     Dosage: TOOK ONE TABLET
     Dates: start: 20150905, end: 201509

REACTIONS (1)
  - Erection increased [Not Recovered/Not Resolved]

NARRATIVE: CASE EVENT DATE: 20150905
